FAERS Safety Report 11721453 (Version 7)
Quarter: 2016Q2

REPORT INFORMATION
  Report Type: Spontaneous
  Country: CN (occurrence: CN)
  Receive Date: 20151111
  Receipt Date: 20160609
  Transmission Date: 20160815
  Serious: No
  Sender: FDA-Public Use
  Company Number: CN-009507513-1511CHN005017

PATIENT
  Age: 58 Year
  Sex: Male
  Weight: 49 kg

DRUGS (15)
  1. DEXAMETHASONE SODIUM PHOSPHATE. [Concomitant]
     Active Substance: DEXAMETHASONE SODIUM PHOSPHATE
     Indication: PROPHYLAXIS OF NAUSEA AND VOMITING
     Dosage: 5 MG, ONCE
     Route: 042
     Dates: start: 20151021, end: 20151021
  2. EMEND [Suspect]
     Active Substance: APREPITANT
     Dosage: 80 MG ON DAY 2
     Route: 048
     Dates: start: 20151022, end: 20151022
  3. EMEND [Suspect]
     Active Substance: APREPITANT
     Indication: PROPHYLAXIS OF NAUSEA AND VOMITING
     Dosage: 125 MG ON DAY 1
     Route: 048
     Dates: start: 20151021, end: 20151021
  4. LIDOCAINE HYDROCHLORIDE. [Concomitant]
     Active Substance: LIDOCAINE HYDROCHLORIDE
     Indication: CENTRAL VENOUS CATHETERISATION
     Dosage: 0.1 G, ONCE
     Route: 041
     Dates: start: 20151020, end: 20151020
  5. LANSOPRAZOLE. [Concomitant]
     Active Substance: LANSOPRAZOLE
     Indication: PROPHYLAXIS
     Dosage: 30 MG, QD
     Route: 041
     Dates: start: 20151021, end: 20151023
  6. ASCORBIC ACID. [Concomitant]
     Active Substance: ASCORBIC ACID
     Indication: NUTRITIONAL SUPPLEMENTATION
     Dosage: 2 G, QD
     Route: 041
     Dates: start: 20151021, end: 20151022
  7. DEXAMETHASONE SODIUM PHOSPHATE. [Concomitant]
     Active Substance: DEXAMETHASONE SODIUM PHOSPHATE
     Dosage: 5 MG, QD
     Route: 041
     Dates: start: 20151021, end: 20151023
  8. UBENIMEX [Concomitant]
     Active Substance: UBENIMEX
     Indication: IMMUNE ENHANCEMENT THERAPY
     Dosage: 30 MG, QD
     Route: 048
     Dates: start: 20151022
  9. GEMCITABINE [Concomitant]
     Active Substance: GEMCITABINE\GEMCITABINE HYDROCHLORIDE
     Indication: CHEMOTHERAPY
     Dosage: 1600 MG, D1, REGIMEN GEMCITABINE AND CISPLATIN, CYCLE 1/UNK
     Route: 041
     Dates: start: 20151021, end: 20151021
  10. ONDANSETRON HYDROCHLORIDE. [Concomitant]
     Active Substance: ONDANSETRON HYDROCHLORIDE
     Indication: PROPHYLAXIS OF NAUSEA AND VOMITING
     Dosage: 8 MG, QD
     Route: 041
     Dates: start: 20151021, end: 20151023
  11. EMEND [Suspect]
     Active Substance: APREPITANT
     Dosage: 80 MG ON DAY 3
     Route: 048
     Dates: start: 20151023, end: 20151023
  12. GEMCITABINE [Concomitant]
     Active Substance: GEMCITABINE\GEMCITABINE HYDROCHLORIDE
     Dosage: UNK
  13. AI DI ZHU SHE YE [Concomitant]
     Indication: SUPPORTIVE CARE
     Dosage: 10 G, QD
     Route: 041
     Dates: start: 20151021, end: 20151022
  14. CISPLATIN. [Concomitant]
     Active Substance: CISPLATIN
     Indication: CHEMOTHERAPY
     Dosage: 50 MG, FROM (D1 TO D2), REGIMEN GEMCITABINE AND CISPLATIN, CYCLE 1/UNK
     Route: 041
     Dates: start: 20151021, end: 20151022
  15. QI JIAO SHENG BAI JIAO NANG [Concomitant]
     Indication: SUPPORTIVE CARE
     Dosage: TOTAL DAILY DOSE: 6G, TID
     Route: 048
     Dates: start: 20151022

REACTIONS (3)
  - Hiccups [Recovered/Resolved]
  - Neutrophil count decreased [Recovered/Resolved]
  - White blood cell count decreased [Recovered/Resolved]

NARRATIVE: CASE EVENT DATE: 20151022
